FAERS Safety Report 9866943 (Version 1)
Quarter: 2014Q1

REPORT INFORMATION
  Report Type: Spontaneous
  Country: US (occurrence: None)
  Receive Date: 20140131
  Receipt Date: 20140131
  Transmission Date: 20141002
  Serious: Yes (Hospitalization, Other)
  Sender: FDA-Public Use
  Company Number: AUR-APL-2014-00705

PATIENT
  Age: 78 Year
  Sex: Female

DRUGS (10)
  1. GABAPENTIN (GABAPENTIN) [Suspect]
     Indication: NEURALGIA
     Dosage: (900 MG, TOTAL ), UNKNOWN  THERAPY DATES - STOPPED
  2. SIMVASTATIN (SIMVASTATIN) [Concomitant]
  3. METFORMIN (METFORMIN) [Concomitant]
  4. CITALOPRAM (CITALOPRAM) [Concomitant]
  5. GABAPENTIN (GABAPENTIN ) [Concomitant]
  6. FLUTICASON PROPIONATE (FLUTICASONE PROPIONATE) [Concomitant]
  7. ALBUTEROL (SALBUTAMOL) [Concomitant]
  8. LISINOPRIL (LISINOPRIL) [Concomitant]
  9. FUROSEMIDE (FUROSEMIDE) [Concomitant]
  10. METOLAZONE (METOLAZONE) [Concomitant]

REACTIONS (7)
  - Toxicity to various agents [None]
  - Myoclonus [None]
  - Blood sodium decreased [None]
  - Hyperkalaemia [None]
  - Haemodialysis [None]
  - Renal failure acute [None]
  - Tremor [None]
